FAERS Safety Report 6217760-X (Version None)
Quarter: 2009Q2

REPORT INFORMATION
  Report Type: 
  Country: None (occurrence: None)
  Receive Date: 20090604
  Receipt Date: 20090604
  Transmission Date: 20091009
  Serious: Yes (Hospitalization)
  Sender: FDA-Public Use
  Company Number: None

PATIENT
  Age: 63 Year
  Sex: Male
  Weight: 102 kg

DRUGS (9)
  1. WARFARIN SODIUM [Suspect]
     Indication: DEEP VEIN THROMBOSIS
     Dosage: 6MG T/F, 9MG OTHER DAILY ORAL
     Route: 048
     Dates: start: 20051201
  2. ACETAMINOPHEN (PRN) [Concomitant]
  3. LISINOPRIL [Concomitant]
  4. ATORVASTATIN CALCIUM [Concomitant]
  5. INSULIN [Concomitant]
  6. DETOMIR [Concomitant]
  7. REGULAR INSULIN [Concomitant]
  8. CITALOPRAM [Concomitant]
  9. ZIOX TOPICAL [Concomitant]

REACTIONS (3)
  - ANAEMIA [None]
  - GASTROINTESTINAL HAEMORRHAGE [None]
  - INTERNATIONAL NORMALISED RATIO INCREASED [None]
